FAERS Safety Report 5141145-0 (Version None)
Quarter: 2006Q4

REPORT INFORMATION
  Report Type: 
  Country: None (occurrence: None)
  Receive Date: 20061101
  Receipt Date: 20061019
  Transmission Date: 20070319
  Serious: Yes (Other)
  Sender: FDA-Public Use
  Company Number: PHEH2006US13099

PATIENT
  Sex: Female

DRUGS (4)
  1. ENABLEX [Suspect]
     Indication: HYPERTONIC BLADDER
     Dosage: 7.5 MG, QD
     Route: 048
     Dates: start: 20051101, end: 20051101
  2. ENABLEX [Suspect]
     Dosage: 15 MG, QD
     Route: 048
     Dates: start: 20051101, end: 20060901
  3. SEROQUEL [Concomitant]
     Dates: end: 20060901
  4. KLONOPIN [Concomitant]
     Dates: end: 20060901

REACTIONS (1)
  - LIVER FUNCTION TEST ABNORMAL [None]
